FAERS Safety Report 5843378-4 (Version None)
Quarter: 2008Q3

REPORT INFORMATION
  Report Type: 
  Country: None (occurrence: None)
  Receive Date: 20080811
  Receipt Date: 20080729
  Transmission Date: 20090109
  Serious: Yes (Death, Life-Threatening, Other)
  Sender: FDA-Public Use
  Company Number: 2008-02416

PATIENT
  Age: 70 Year
  Sex: Male
  Weight: 63 kg

DRUGS (22)
  1. VELCADE [Suspect]
     Indication: MULTIPLE MYELOMA
     Dosage: 1.6 MG/M2, INTRAVENOUS
     Route: 042
     Dates: start: 20080616, end: 20080626
  2. DECADRON [Suspect]
     Indication: MULTIPLE MYELOMA
     Dosage: 16 MG, INTRAVENOUS
     Route: 042
     Dates: start: 20080616, end: 20080626
  3. KYTRIL [Concomitant]
  4. PRIMPERAN TAB [Concomitant]
  5. SEISHOKU (SODIUM CHLORIDE) [Concomitant]
  6. SODIUM BICARBONATE [Concomitant]
  7. ZOMETA [Concomitant]
  8. SOLDEM 3A (SODIUM LACTATE, POTASSIUM CHLORIDE, CARBOHYDRATES NOS, SODI [Concomitant]
  9. OMEPRAZOLE [Concomitant]
  10. AMLODIPINE BESYLATE [Concomitant]
  11. MECOBALAMIN (MECOBALAMIN) [Concomitant]
  12. TORSEMIDE [Concomitant]
  13. ZOLPIDEM TARTRATE [Concomitant]
  14. MAG-LAX (MAGNESIUM HYDROXIDE, PARAFFIN, LIQUID) [Concomitant]
  15. ITRACONAZOLE [Concomitant]
  16. LASIX [Concomitant]
  17. MARZULENE S (LEVOGLUTAMIDE, SODIUM GUALENATE) [Concomitant]
  18. GOSHAJINKIGAN (HERBAL EXTRACTS NOS) [Concomitant]
  19. ALDACTONE [Concomitant]
  20. PURSENNID (SENNA LEAF) [Concomitant]
  21. HACHIAZULE (SODIUM BICARBONATE, SODIUM GUALENATE) [Concomitant]
  22. CATAPLASMATA [Concomitant]

REACTIONS (14)
  - BLOOD PRESSURE DECREASED [None]
  - CARDIAC FAILURE [None]
  - CARDIO-RESPIRATORY ARREST [None]
  - CHEST PAIN [None]
  - DIARRHOEA [None]
  - DISSEMINATED INTRAVASCULAR COAGULATION [None]
  - DIZZINESS [None]
  - ILEUS PARALYTIC [None]
  - INTESTINAL OBSTRUCTION [None]
  - OXYGEN SATURATION DECREASED [None]
  - PANCREATITIS ACUTE [None]
  - PLATELET COUNT DECREASED [None]
  - PYREXIA [None]
  - RESPIRATORY FAILURE [None]
